FAERS Safety Report 21886022 (Version 1)
Quarter: 2023Q1

REPORT INFORMATION
  Report Type: Spontaneous
  Country: US (occurrence: None)
  Receive Date: 20230118
  Receipt Date: 20230118
  Transmission Date: 20230418
  Serious: No
  Sender: FDA-Public Use
  Company Number: None

PATIENT
  Age: 49 Year
  Sex: Female
  Weight: 100.35 kg

DRUGS (1)
  1. CANNABIS SATIVA SUBSP. INDICA TOP [Suspect]
     Active Substance: CANNABIS SATIVA SUBSP. INDICA TOP
     Indication: Post-traumatic stress disorder
     Dosage: OTHER STRENGTH : MG THC,0.16 MG CBD;?OTHER QUANTITY : 1 PATCH(ES);?FREQUENCY : AS NEEDED;?
     Route: 062
     Dates: start: 20230116, end: 20230116

REACTIONS (7)
  - Application site vesicles [None]
  - Application site erythema [None]
  - Application site irritation [None]
  - Application site pain [None]
  - Headache [None]
  - Eye pain [None]
  - Gastric disorder [None]

NARRATIVE: CASE EVENT DATE: 20230116
